FAERS Safety Report 21385368 (Version 1)
Quarter: 2022Q3

REPORT INFORMATION
  Report Type: Spontaneous
  Country: US (occurrence: US)
  Receive Date: 20220928
  Receipt Date: 20220928
  Transmission Date: 20221026
  Serious: Yes (Life-Threatening, Other)
  Sender: FDA-Public Use
  Company Number: US-drreddys-LIT/USA/22/0154937

PATIENT
  Age: 55 Year
  Sex: Female

DRUGS (3)
  1. LETROZOLE [Suspect]
     Active Substance: LETROZOLE
     Indication: Uterine cancer
  2. FULVESTRANT [Suspect]
     Active Substance: FULVESTRANT
     Indication: Uterine cancer
  3. EXEMESTANE [Concomitant]
     Active Substance: EXEMESTANE
     Indication: Uterine cancer

REACTIONS (3)
  - Drug ineffective for unapproved indication [Unknown]
  - Endometrial stromal sarcoma [Unknown]
  - Gene mutation [Unknown]
